FAERS Safety Report 7211006-1 (Version None)
Quarter: 2011Q1

REPORT INFORMATION
  Report Type: 
  Country: None (occurrence: None)
  Receive Date: 20110105
  Receipt Date: 20101230
  Transmission Date: 20110831
  Serious: Yes (Life-Threatening)
  Sender: FDA-Public Use
  Company Number: B0691593A

PATIENT
  Sex: Female

DRUGS (1)
  1. AUGMENTIN '125' [Suspect]
     Dosage: 1G SINGLE DOSE
     Route: 042
     Dates: start: 20101211, end: 20101211

REACTIONS (7)
  - HYPERSENSITIVITY [None]
  - HYPOTENSION [None]
  - ANAPHYLACTIC REACTION [None]
  - TACHYCARDIA [None]
  - LOSS OF CONSCIOUSNESS [None]
  - ERYTHEMA [None]
  - HYPERHIDROSIS [None]
